FAERS Safety Report 23991711 (Version 1)
Quarter: 2024Q2

REPORT INFORMATION
  Report Type: Spontaneous
  Country: US (occurrence: US)
  Receive Date: 20240619
  Receipt Date: 20240619
  Transmission Date: 20240716
  Serious: Yes (Other)
  Sender: FDA-Public Use
  Company Number: US-ALXN-202406USA000604US

PATIENT
  Age: 70 Year
  Weight: 78.458 kg

DRUGS (6)
  1. SOLIRIS [Suspect]
     Active Substance: ECULIZUMAB
     Indication: Myasthenia gravis
     Dosage: 1200 MILLIGRAM, Q2W
     Route: 042
  2. GRANULEX [Concomitant]
     Active Substance: CASTOR OIL\PERU BALSAM\TRYPSIN
     Indication: Product used for unknown indication
     Dosage: 8 GRAM, 1 PER MONTH
     Route: 042
  3. DILAUDID [Concomitant]
     Active Substance: HYDROMORPHONE HYDROCHLORIDE
     Indication: Product used for unknown indication
     Dosage: 40 PERCENT
     Route: 065
  4. PREDNISONE [Concomitant]
     Active Substance: PREDNISONE
     Indication: Product used for unknown indication
     Dosage: 10 MILLIGRAM
     Route: 048
  5. INSULIN NOS [Concomitant]
     Active Substance: INSULIN NOS
     Indication: Product used for unknown indication
     Dosage: UNK
     Route: 065
  6. INSULIN NOS [Concomitant]
     Active Substance: INSULIN NOS
     Dosage: 100 INTERNATIONAL UNIT
     Route: 065

REACTIONS (5)
  - Myasthenia gravis [Recovering/Resolving]
  - Glaucoma [Unknown]
  - Therapeutic response shortened [Unknown]
  - Insurance issue [Unknown]
  - Weight increased [Unknown]
